FAERS Safety Report 15784478 (Version 1)
Quarter: 2019Q1

REPORT INFORMATION
  Report Type: Spontaneous
  Country: IT (occurrence: IT)
  Receive Date: 20190103
  Receipt Date: 20190103
  Transmission Date: 20190417
  Serious: Yes (Hospitalization, Other)
  Sender: FDA-Public Use
  Company Number: IT-ACCORD-098090

PATIENT
  Age: 68 Year
  Sex: Female

DRUGS (2)
  1. LORAZEPAM. [Concomitant]
     Active Substance: LORAZEPAM
     Indication: GENERALISED TONIC-CLONIC SEIZURE
  2. LEVETIRACETAM. [Suspect]
     Active Substance: LEVETIRACETAM
     Indication: GENERALISED TONIC-CLONIC SEIZURE
     Dosage: REDUCED TO 250 MG B.I.D., AGAIN REDUCED

REACTIONS (5)
  - Renal impairment [Recovered/Resolved]
  - C-reactive protein increased [Recovered/Resolved]
  - Overdose [Unknown]
  - Acute psychosis [Recovered/Resolved]
  - Metabolic alkalosis [Recovered/Resolved]
